FAERS Safety Report 8439736-4 (Version None)
Quarter: 2012Q2

REPORT INFORMATION
  Report Type: 
  Country: None (occurrence: None)
  Receive Date: 20120615
  Receipt Date: 20120604
  Transmission Date: 20120825
  Serious: Yes (Other)
  Sender: FDA-Public Use
  Company Number: FR-SANOFI-AVENTIS-2012SA040124

PATIENT
  Sex: Female

DRUGS (7)
  1. AMLODIPINE BESYLATE [Concomitant]
     Dosage: STRENGTH; 10 MG
  2. ISRADIPINE [Concomitant]
  3. LESCOL [Concomitant]
     Dosage: STRENGTH; 20 MG
  4. PLAQUENIL [Suspect]
     Route: 065
     Dates: end: 20110901
  5. SULFARLEM [Concomitant]
     Dosage: STRENGTH; 25 MG
  6. ARTISIAL [Concomitant]
     Dosage: FORM; VIAL
  7. DAFLON [Concomitant]
     Dosage: STRENGTH; 500 MG

REACTIONS (1)
  - DERMATITIS BULLOUS [None]
